FAERS Safety Report 5513675-0 (Version None)
Quarter: 2007Q4

REPORT INFORMATION
  Report Type: 
  Country: None (occurrence: None)
  Receive Date: 20071108
  Receipt Date: 20071024
  Transmission Date: 20080405
  Serious: Yes (Death)
  Sender: FDA-Public Use
  Company Number: 2002001576-FJ

PATIENT
  Age: 63 Year
  Sex: Male

DRUGS (7)
  1. PROGRAF [Suspect]
     Indication: MYASTHENIA GRAVIS
     Dosage: 3 MG, D, ORAL
     Route: 048
     Dates: start: 20020118, end: 20020414
  2. PREDNISONE [Concomitant]
  3. PYRIDOSTIGMINE BROMIDE [Concomitant]
  4. FAMOTIDINE [Concomitant]
  5. POLAPREZINC (POLAPREZINC) [Concomitant]
  6. BIFIDOBACTERIA [Concomitant]
  7. INSULIN [Concomitant]

REACTIONS (33)
  - AV DISSOCIATION [None]
  - BACK INJURY [None]
  - BLOOD CREATINE PHOSPHOKINASE INCREASED [None]
  - CARDIAC DISORDER [None]
  - CARDIAC HYPERTROPHY [None]
  - CARDIAC OUTPUT DECREASED [None]
  - CHEST DISCOMFORT [None]
  - CONDITION AGGRAVATED [None]
  - CONTUSION [None]
  - DEHYDRATION [None]
  - DYSPNOEA EXERTIONAL [None]
  - ELECTROCARDIOGRAM QRS COMPLEX PROLONGED [None]
  - ELECTROCARDIOGRAM ST SEGMENT ABNORMAL [None]
  - FALL [None]
  - HEAD INJURY [None]
  - HEPATIC CONGESTION [None]
  - HYPERCAPNIA [None]
  - HYPERGLYCAEMIA [None]
  - MALAISE [None]
  - METASTASES TO LUNG [None]
  - MUSCLE DISORDER [None]
  - MYASTHENIA GRAVIS [None]
  - MYOCARDITIS [None]
  - MYOGLOBIN BLOOD INCREASED [None]
  - MYOSITIS [None]
  - PAIN [None]
  - RENAL IMPAIRMENT [None]
  - RESPIRATORY DISTRESS [None]
  - THYMOMA [None]
  - VENTRICULAR ARRHYTHMIA [None]
  - VENTRICULAR DYSKINESIA [None]
  - VENTRICULAR TACHYCARDIA [None]
  - WHITE BLOOD CELL COUNT INCREASED [None]
